FAERS Safety Report 10365974 (Version 2)
Quarter: 2014Q3

REPORT INFORMATION
  Report Type: Spontaneous
  Country: US (occurrence: US)
  Receive Date: 20140806
  Receipt Date: 20140806
  Transmission Date: 20150326
  Serious: Yes (Hospitalization)
  Sender: FDA-Public Use
  Company Number: US-GLAXOSMITHKLINE-A0695894A

PATIENT
  Sex: Male
  Weight: 108.2 kg

DRUGS (17)
  1. METFORMIN [Concomitant]
     Active Substance: METFORMIN HYDROCHLORIDE
     Dates: start: 2003, end: 2004
  2. METOCLOPRAMIDE. [Concomitant]
     Active Substance: METOCLOPRAMIDE
  3. MIRALAX [Concomitant]
     Active Substance: POLYETHYLENE GLYCOL 3350
  4. CORDARONE [Concomitant]
     Active Substance: AMIODARONE HYDROCHLORIDE
  5. MULTIVITAMIN [Concomitant]
     Active Substance: VITAMINS
  6. GLUCOTROL [Concomitant]
     Active Substance: GLIPIZIDE
     Dates: start: 2000
  7. ZOCOR [Concomitant]
     Active Substance: SIMVASTATIN
  8. AMIODARONE [Concomitant]
     Active Substance: AMIODARONE
  9. LASIX [Concomitant]
     Active Substance: FUROSEMIDE
  10. LANTUS [Concomitant]
     Active Substance: INSULIN GLARGINE
     Dates: start: 2005, end: 2005
  11. ASA [Concomitant]
     Active Substance: ASPIRIN
  12. FLOMAX [Concomitant]
     Active Substance: TAMSULOSIN HYDROCHLORIDE
  13. LEXAPRO [Concomitant]
     Active Substance: ESCITALOPRAM OXALATE
  14. GLUCOPHAGE [Concomitant]
     Active Substance: METFORMIN HYDROCHLORIDE
     Dates: start: 2000
  15. FUROSEMIDE. [Concomitant]
     Active Substance: FUROSEMIDE
  16. AVANDIA [Suspect]
     Active Substance: ROSIGLITAZONE MALEATE
     Indication: TYPE 2 DIABETES MELLITUS
     Route: 048
     Dates: start: 200012, end: 200706
  17. COLACE [Concomitant]
     Active Substance: DOCUSATE SODIUM

REACTIONS (16)
  - Pain [Unknown]
  - Atrial fibrillation [Unknown]
  - Cardio-respiratory arrest [Unknown]
  - Fear of death [Unknown]
  - Heart injury [Unknown]
  - Cardiac arrest [Unknown]
  - Pulmonary oedema [Unknown]
  - Fatigue [Unknown]
  - Activities of daily living impaired [Unknown]
  - Myocardial infarction [Unknown]
  - Ventricular tachycardia [Unknown]
  - Myocardial ischaemia [Unknown]
  - Cardiogenic shock [Unknown]
  - Cardiac failure congestive [Unknown]
  - Coronary artery disease [Unknown]
  - Pleural effusion [Unknown]
